FAERS Safety Report 11262118 (Version 3)
Quarter: 2015Q3

REPORT INFORMATION
  Report Type: Spontaneous
  Country: DE (occurrence: DE)
  Receive Date: 20150710
  Receipt Date: 20150730
  Transmission Date: 20151125
  Serious: Yes (Hospitalization, Other)
  Sender: FDA-Public Use
  Company Number: DE-ASTELLAS-2015US023646

PATIENT
  Sex: Male

DRUGS (2)
  1. VERAPAMIL [Concomitant]
     Active Substance: VERAPAMIL HYDROCHLORIDE
     Indication: PRODUCT USED FOR UNKNOWN INDICATION
     Dosage: UNK UNK, UNKNOWN FREQ.
     Route: 065
  2. XTANDI [Suspect]
     Active Substance: ENZALUTAMIDE
     Indication: PRODUCT USED FOR UNKNOWN INDICATION
     Dosage: UNK UNK, UNKNOWN FREQ.
     Route: 065
     Dates: start: 20150617

REACTIONS (9)
  - Gamma-glutamyltransferase increased [Unknown]
  - Blood test abnormal [Unknown]
  - Diarrhoea [Unknown]
  - General physical health deterioration [Unknown]
  - Prostate cancer [Unknown]
  - Blood urine present [Unknown]
  - Decreased appetite [Unknown]
  - Nausea [Unknown]
  - Fatigue [Unknown]
